FAERS Safety Report 9603368 (Version 2)
Quarter: 2013Q4

REPORT INFORMATION
  Report Type: Spontaneous
  Country: DK (occurrence: CH)
  Receive Date: 20131007
  Receipt Date: 20131231
  Transmission Date: 20140711
  Serious: Yes (Hospitalization)
  Sender: FDA-Public Use
  Company Number: CH-FRI-1000049606

PATIENT
  Sex: Female

DRUGS (16)
  1. ESCITALOPRAM ORAL SOLUTION [Suspect]
     Dosage: 20 MG
     Route: 048
  2. XARELTO [Suspect]
     Indication: THROMBOSIS PROPHYLAXIS
     Dosage: 20 MG
     Route: 048
     Dates: start: 20130822, end: 20130906
  3. XARELTO [Suspect]
     Dosage: 15 MG
     Route: 048
     Dates: start: 20130909
  4. FLECTOR [Suspect]
     Indication: PAIN
     Dosage: 1 DF
     Dates: end: 201309
  5. NEBILET [Concomitant]
     Dosage: 5 MG
  6. MEPHANOL [Concomitant]
     Dosage: 300 MG
  7. MARCOUMAR [Concomitant]
     Dosage: 3 MG
  8. VITAMIN D3 [Concomitant]
  9. TRITTICO [Concomitant]
     Dosage: 100 MG
  10. ATORVASTATIN [Concomitant]
  11. NOVALGIN [Concomitant]
     Dosage: 1000 MG
  12. TRAUMANASE [Concomitant]
     Dosage: 3 DF
     Route: 048
  13. NOPIL FORTE [Concomitant]
     Dosage: 2 DF
     Route: 048
  14. GLAUPAX [Concomitant]
     Route: 048
  15. COSOPT [Concomitant]
     Route: 048
  16. KIMZALPLUS [Concomitant]

REACTIONS (3)
  - Gastrointestinal haemorrhage [Recovered/Resolved]
  - Haemorrhagic anaemia [Recovered/Resolved]
  - International normalised ratio increased [Recovered/Resolved]
